FAERS Safety Report 21174576 (Version 1)
Quarter: 2022Q3

REPORT INFORMATION
  Report Type: Spontaneous
  Country: US (occurrence: None)
  Receive Date: 20220805
  Receipt Date: 20220805
  Transmission Date: 20221027
  Serious: Yes (Other)
  Sender: FDA-Public Use
  Company Number: US-ROCHE-3101394

PATIENT
  Sex: Female

DRUGS (10)
  1. VABYSMO [Suspect]
     Active Substance: FARICIMAB-SVOA
     Indication: Neovascular age-related macular degeneration
     Route: 050
     Dates: start: 20220328
  2. VABYSMO [Suspect]
     Active Substance: FARICIMAB-SVOA
     Route: 050
     Dates: start: 20220502
  3. EYLEA [Concomitant]
     Active Substance: AFLIBERCEPT
     Dates: start: 20220228
  4. EYLEA [Concomitant]
     Active Substance: AFLIBERCEPT
     Dates: start: 20220103
  5. EYLEA [Concomitant]
     Active Substance: AFLIBERCEPT
     Dates: start: 20220131
  6. VANCOMYCIN [Concomitant]
     Active Substance: VANCOMYCIN
     Dates: start: 20220504
  7. CEFTAZIDIME [Concomitant]
     Active Substance: CEFTAZIDIME
     Route: 050
     Dates: start: 20220504
  8. ATROPINE [Concomitant]
     Active Substance: ATROPINE
     Route: 061
     Dates: start: 20220504
  9. GENTAMICIN [Concomitant]
     Active Substance: GENTAMICIN
     Dates: start: 20220504
  10. TOBRADEX [Concomitant]
     Active Substance: DEXAMETHASONE\TOBRAMYCIN
     Dates: start: 20220504

REACTIONS (2)
  - Eye inflammation [Unknown]
  - Vision blurred [Unknown]
